FAERS Safety Report 14128354 (Version 1)
Quarter: 2017Q4

REPORT INFORMATION
  Report Type: Spontaneous
  Country: US (occurrence: None)
  Receive Date: 20171026
  Receipt Date: 20171026
  Transmission Date: 20180321
  Serious: Yes (Hospitalization)
  Sender: FDA-Public Use
  Company Number: None

PATIENT
  Age: 65 Year
  Sex: Female
  Weight: 54.3 kg

DRUGS (1)
  1. MEMANTINE HYDROCHLORIDE. [Suspect]
     Active Substance: MEMANTINE HYDROCHLORIDE
     Dates: end: 20171002

REACTIONS (9)
  - Abdominal pain upper [None]
  - Nausea [None]
  - Chest pain [None]
  - Pain [None]
  - Back pain [None]
  - Abdominal distension [None]
  - Intestinal obstruction [None]
  - Refusal of treatment by patient [None]
  - Dyspnoea [None]

NARRATIVE: CASE EVENT DATE: 20171002
